FAERS Safety Report 5299348-0 (Version None)
Quarter: 2007Q2

REPORT INFORMATION
  Report Type: 
  Country: None (occurrence: None)
  Receive Date: 20070411
  Receipt Date: 20070411
  Transmission Date: 20071010
  Serious: Yes (Death, Hospitalization)
  Sender: FDA-Public Use
  Company Number: None

PATIENT
  Sex: Male

DRUGS (2)
  1. GM-CSF [Suspect]
     Indication: PROSTATE CANCER
     Dosage: 250 MG/M2 QD X 14 SQ
     Route: 058
     Dates: start: 20061108, end: 20070214
  2. CEFEPIM [Concomitant]

REACTIONS (9)
  - DISEASE PROGRESSION [None]
  - HYPOTENSION [None]
  - MUSCULAR WEAKNESS [None]
  - OEDEMA PERIPHERAL [None]
  - PNEUMONIA [None]
  - PROSTATE CANCER [None]
  - RESPIRATORY DISTRESS [None]
  - TACHYCARDIA [None]
  - URINARY RETENTION [None]
